FAERS Safety Report 22056261 (Version 3)
Quarter: 2023Q2

REPORT INFORMATION
  Report Type: Report from Study
  Country: US (occurrence: US)
  Receive Date: 20230302
  Receipt Date: 20230517
  Transmission Date: 20230721
  Serious: Yes (Hospitalization, Other)
  Sender: FDA-Public Use
  Company Number: US-BEIGENE, LTD-BGN-2022-009847

PATIENT

DRUGS (4)
  1. BRUKINSA [Suspect]
     Active Substance: ZANUBRUTINIB
     Indication: B-cell lymphoma
     Dosage: 160 MILLIGRAM, BID
     Route: 048
     Dates: start: 20220923
  2. BRUKINSA [Suspect]
     Active Substance: ZANUBRUTINIB
     Dosage: 80 MILLIGRAM, QD
     Route: 048
     Dates: start: 20220923
  3. BRUKINSA [Suspect]
     Active Substance: ZANUBRUTINIB
     Dosage: 80 MILLIGRAM, QD
     Route: 048
     Dates: start: 20220923
  4. BRUKINSA [Suspect]
     Active Substance: ZANUBRUTINIB
     Dosage: 80 MILLIGRAM, QD
     Route: 048
     Dates: start: 20220923

REACTIONS (19)
  - Penile haemorrhage [Unknown]
  - Renal failure [Unknown]
  - Hospitalisation [Unknown]
  - Rash macular [Unknown]
  - Urinary tract infection [Recovered/Resolved]
  - Contusion [Unknown]
  - Asthenia [Unknown]
  - Fatigue [Unknown]
  - Depression [Unknown]
  - Weight decreased [Unknown]
  - Boredom [Unknown]
  - Diarrhoea [Unknown]
  - Renal disorder [Unknown]
  - Malaise [Unknown]
  - Arthralgia [Unknown]
  - Product dose omission issue [Unknown]
  - Off label use [Unknown]
  - Prescribed underdose [Unknown]
  - Overdose [Unknown]

NARRATIVE: CASE EVENT DATE: 20220923
